FAERS Safety Report 6266631-1 (Version None)
Quarter: 2009Q3

REPORT INFORMATION
  Report Type: 
  Country: None (occurrence: None)
  Receive Date: 20090710
  Receipt Date: 20090626
  Transmission Date: 20100115
  Serious: No
  Sender: FDA-Public Use
  Company Number: SPI200900206

PATIENT
  Sex: Female

DRUGS (1)
  1. AMITIZA [Suspect]

REACTIONS (4)
  - CHEST PAIN [None]
  - DYSPNOEA [None]
  - RASH [None]
  - SWELLING FACE [None]
